FAERS Safety Report 5611475-4 (Version None)
Quarter: 2008Q1

REPORT INFORMATION
  Report Type: 
  Country: None (occurrence: None)
  Receive Date: 20080201
  Receipt Date: 20070726
  Transmission Date: 20080703
  Serious: No
  Sender: FDA-Public Use
  Company Number: A0666520A

PATIENT
  Age: 22 Year
  Sex: Female

DRUGS (2)
  1. LOTRONEX [Suspect]
     Indication: DRUG USE FOR UNKNOWN INDICATION
     Dosage: 1MG TWICE PER DAY
     Route: 048
     Dates: start: 20070708
  2. BIRTH CONTROL [Concomitant]

REACTIONS (1)
  - DRUG INEFFECTIVE [None]
